FAERS Safety Report 10860635 (Version 2)
Quarter: 2015Q1

REPORT INFORMATION
  Report Type: Spontaneous
  Country: JP (occurrence: JP)
  Receive Date: 20150224
  Receipt Date: 20150303
  Transmission Date: 20150721
  Serious: Yes (Death, Life-Threatening)
  Sender: FDA-Public Use
  Company Number: JP-ROCHE-1541801

PATIENT
  Age: 73 Year
  Sex: Male
  Weight: 43 kg

DRUGS (3)
  1. AVASTIN [Suspect]
     Active Substance: BEVACIZUMAB
     Indication: LUNG ADENOCARCINOMA METASTATIC
     Dosage: TREATMENT LINE: 1ST
     Route: 041
     Dates: start: 20130109, end: 20130425
  2. PACLITAXEL. [Suspect]
     Active Substance: PACLITAXEL
     Indication: LUNG ADENOCARCINOMA METASTATIC
     Dosage: COMPLETED TREATMENT CYCLE NUMBER: 4
     Route: 041
     Dates: start: 20130109, end: 20130425
  3. CARBOPLATIN. [Suspect]
     Active Substance: CARBOPLATIN
     Indication: LUNG ADENOCARCINOMA METASTATIC
     Dosage: AUC?COMPLETED TREATMENT CYCLE NUMBER: 4
     Route: 041
     Dates: start: 20130109, end: 20130425

REACTIONS (2)
  - Interstitial lung disease [Not Recovered/Not Resolved]
  - Lung neoplasm malignant [Fatal]

NARRATIVE: CASE EVENT DATE: 20130515
